FAERS Safety Report 13358252 (Version 1)
Quarter: 2017Q1

REPORT INFORMATION
  Report Type: Spontaneous
  Country: US (occurrence: US)
  Receive Date: 20170322
  Receipt Date: 20170322
  Transmission Date: 20170429
  Serious: No
  Sender: FDA-Public Use
  Company Number: US-009507513-1703USA006266

PATIENT
  Age: 41 Year
  Sex: Female

DRUGS (1)
  1. BELSOMRA [Suspect]
     Active Substance: SUVOREXANT
     Indication: INSOMNIA
     Dosage: 1 DF, HS
     Route: 048
     Dates: start: 201703

REACTIONS (1)
  - Sleep paralysis [Unknown]

NARRATIVE: CASE EVENT DATE: 201703
